FAERS Safety Report 6851507-9 (Version None)
Quarter: 2010Q3

REPORT INFORMATION
  Report Type: 
  Country: None (occurrence: None)
  Receive Date: 20100717
  Receipt Date: 20080121
  Transmission Date: 20110219
  Serious: No
  Sender: FDA-Public Use
  Company Number: US-PFIZER INC-2008006998

PATIENT
  Sex: Male
  Weight: 70 kg

DRUGS (3)
  1. CHANTIX [Suspect]
  2. LAXATIVES [Concomitant]
     Indication: DIARRHOEA
  3. ALL OTHER THERAPEUTIC PRODUCTS [Concomitant]

REACTIONS (1)
  - CONSTIPATION [None]
